FAERS Safety Report 5928966-9 (Version None)
Quarter: 2008Q3

REPORT INFORMATION
  Report Type: 
  Country: None (occurrence: None)
  Receive Date: 20080924
  Receipt Date: 20080708
  Transmission Date: 20090109
  Serious: Yes (Hospitalization, Other)
  Sender: FDA-Public Use
  Company Number: PHEH2008US06104

PATIENT
  Sex: Female

DRUGS (3)
  1. COMBIPATCH [Suspect]
     Indication: HORMONE REPLACEMENT THERAPY
     Dosage: TRANSDERMAL
     Route: 062
     Dates: start: 19990617, end: 19991201
  2. PREMPRO [Suspect]
     Indication: HORMONE REPLACEMENT THERAPY
     Dates: start: 19991201, end: 20010703
  3. PREMARIN [Suspect]
     Indication: HORMONE REPLACEMENT THERAPY
     Dates: start: 19991201, end: 20010703

REACTIONS (13)
  - ANXIETY [None]
  - BIOPSY BREAST ABNORMAL [None]
  - BREAST CANCER [None]
  - CHEMOTHERAPY [None]
  - FEAR [None]
  - FEELING ABNORMAL [None]
  - LIFE EXPECTANCY SHORTENED [None]
  - LYMPHADENECTOMY [None]
  - MAMMOGRAM ABNORMAL [None]
  - MASTECTOMY [None]
  - PAIN [None]
  - PSYCHIATRIC SYMPTOM [None]
  - SCAR [None]
